FAERS Safety Report 9314031 (Version 3)
Quarter: 2013Q2

REPORT INFORMATION
  Report Type: Spontaneous
  Country: JP (occurrence: JP)
  Receive Date: 20130529
  Receipt Date: 20130610
  Transmission Date: 20140414
  Serious: Yes (Death)
  Sender: FDA-Public Use
  Company Number: JP-CELGENEUS-087-21660-13053519

PATIENT
  Age: 83 Year
  Sex: Male
  Weight: 46 kg

DRUGS (3)
  1. ABRAXANE [Suspect]
     Indication: METASTATIC GASTRIC CANCER
     Dosage: 260 MILLIGRAM
     Route: 050
     Dates: start: 20130501, end: 20130501
  2. PLETAAL [Concomitant]
     Indication: CEREBRAL INFARCTION
     Dosage: 200 MILLIGRAM
     Route: 048
     Dates: end: 20130430
  3. CASODEX [Concomitant]
     Indication: PROSTATE CANCER
     Route: 065

REACTIONS (2)
  - Neutropenia [Fatal]
  - Pneumonia aspiration [Fatal]
